FAERS Safety Report 5027523-9 (Version None)
Quarter: 2006Q2

REPORT INFORMATION
  Report Type: 
  Country: None (occurrence: None)
  Receive Date: 20060515
  Receipt Date: 20060216
  Transmission Date: 20061013
  Serious: No
  Sender: FDA-Public Use
  Company Number: S06-USA-00566-01

PATIENT
  Age: 83 Year
  Sex: Male

DRUGS (4)
  1. NAMENDA [Suspect]
     Indication: AMNESIA
     Dosage: 5 MG BID PO
     Route: 048
     Dates: start: 20060215, end: 20060215
  2. NAMENDA [Suspect]
     Indication: AMNESIA
     Dosage: 5 MG QD PO
     Route: 048
     Dates: start: 20060208, end: 20060214
  3. LUNESTA [Concomitant]
  4. MULTIPLE MEDICATIONS (NOS) [Concomitant]

REACTIONS (3)
  - ASTHENIA [None]
  - DYSPHONIA [None]
  - TREMOR [None]
